FAERS Safety Report 7462361-9 (Version None)
Quarter: 2011Q2

REPORT INFORMATION
  Report Type: 
  Country: None (occurrence: None)
  Receive Date: 20110506
  Receipt Date: 20110429
  Transmission Date: 20111010
  Serious: Yes (Hospitalization, Disabling)
  Sender: FDA-Public Use
  Company Number: BR-PFIZER INC-2011093524

PATIENT
  Age: 42 Year
  Sex: Female
  Weight: 49 kg

DRUGS (3)
  1. DEPO-PROVERA [Suspect]
     Indication: OFF LABEL USE
     Dosage: UNK
     Route: 030
  2. NEOSALDINA [Concomitant]
     Dosage: UNK
     Dates: start: 20110201
  3. DEPO-PROVERA [Suspect]
     Indication: MENSTRUAL DISCOMFORT

REACTIONS (4)
  - METRORRHAGIA [None]
  - HEADACHE [None]
  - DIZZINESS [None]
  - MALAISE [None]
